FAERS Safety Report 20843603 (Version 1)
Quarter: 2022Q2

REPORT INFORMATION
  Report Type: Spontaneous
  Country: IT (occurrence: IT)
  Receive Date: 20220518
  Receipt Date: 20220518
  Transmission Date: 20220720
  Serious: Yes (Other)
  Sender: FDA-Public Use
  Company Number: None

PATIENT
  Age: 56 Year
  Sex: Male
  Weight: 70 kg

DRUGS (1)
  1. ENTYVIO [Suspect]
     Active Substance: VEDOLIZUMAB
     Indication: Colitis
     Dosage: UNK DOSAGE FORM
     Route: 042
     Dates: start: 20210701, end: 20220502

REACTIONS (4)
  - Rectal haemorrhage [Unknown]
  - Drug ineffective [Unknown]
  - Pain [Unknown]
  - Mucous stools [Unknown]

NARRATIVE: CASE EVENT DATE: 20220502
